FAERS Safety Report 14686522 (Version 1)
Quarter: 2018Q1

REPORT INFORMATION
  Report Type: Spontaneous
  Country: US (occurrence: US)
  Receive Date: 20180326
  Receipt Date: 20180326
  Transmission Date: 20180509
  Serious: Yes (Hospitalization, Other)
  Sender: FDA-Public Use
  Company Number: None

PATIENT
  Age: 32 Year
  Sex: Male
  Weight: 87.3 kg

DRUGS (4)
  1. HERBAL TEA-CHAMOMILE [Concomitant]
  2. MOTRIN [Concomitant]
     Active Substance: IBUPROFEN
  3. CIPRO [Suspect]
     Active Substance: CIPROFLOXACIN HYDROCHLORIDE
     Indication: URINARY TRACT INFECTION
     Route: 048
     Dates: start: 20180225, end: 20180303
  4. VITAMIN B12 [Concomitant]
     Active Substance: CYANOCOBALAMIN

REACTIONS (9)
  - Depression [None]
  - Neck pain [None]
  - Headache [None]
  - Insomnia [None]
  - Decreased appetite [None]
  - Pain in extremity [None]
  - Muscular weakness [None]
  - Muscle tightness [None]
  - Nausea [None]

NARRATIVE: CASE EVENT DATE: 20180303
